FAERS Safety Report 6035223-1 (Version None)
Quarter: 2009Q1

REPORT INFORMATION
  Report Type: 
  Country: None (occurrence: None)
  Receive Date: 20090109
  Receipt Date: 20081231
  Transmission Date: 20090719
  Serious: Yes (Hospitalization, Other)
  Sender: FDA-Public Use
  Company Number: 100#03#2009-00014

PATIENT
  Age: 60 Year
  Sex: Male

DRUGS (5)
  1. TRAMADOL HCL [Suspect]
     Indication: DRUG USE FOR UNKNOWN INDICATION
     Dosage: 50 MG THREE TIMES DAILY
  2. LYRICA [Suspect]
     Indication: BACK PAIN
     Dosage: 25 MG ONCE DAILY ORAL
     Route: 048
     Dates: start: 20080726, end: 20080726
  3. LYRICA [Suspect]
     Indication: RADICULAR PAIN
     Dosage: 25 MG ONCE DAILY ORAL
     Route: 048
     Dates: start: 20080726, end: 20080726
  4. LYRICA [Suspect]
     Indication: SCIATICA
     Dosage: 25 MG ONCE DAILY ORAL
     Route: 048
     Dates: start: 20080726, end: 20080726
  5. LYRICA [Suspect]
     Indication: SPINAL COLUMN STENOSIS
     Dosage: 25 MG ONCE DAILY ORAL
     Route: 048
     Dates: start: 20080726, end: 20080726

REACTIONS (3)
  - DRUG INTERACTION [None]
  - FALL [None]
  - SYNCOPE [None]
